FAERS Safety Report 9155815 (Version 1)
Quarter: 2013Q1

REPORT INFORMATION
  Report Type: Spontaneous
  Country: DK (occurrence: DK)
  Receive Date: 20130311
  Receipt Date: 20130311
  Transmission Date: 20140127
  Serious: Yes (Death, Hospitalization)
  Sender: FDA-Public Use
  Company Number: PHHY2012DK107527

PATIENT
  Age: 86 Year
  Sex: Male

DRUGS (1)
  1. BIOCLAVID [Suspect]
     Indication: PNEUMONIA
     Dates: start: 20121101, end: 20121105

REACTIONS (6)
  - Death [Fatal]
  - Hepatitis [Recovering/Resolving]
  - Liver disorder [Recovering/Resolving]
  - Pyrexia [Recovering/Resolving]
  - Malaise [Unknown]
  - Confusional state [Unknown]
